FAERS Safety Report 8593897-5 (Version None)
Quarter: 2012Q3

REPORT INFORMATION
  Report Type: 
  Country: None (occurrence: None)
  Receive Date: 20120814
  Receipt Date: 20120730
  Transmission Date: 20120928
  Serious: No
  Sender: FDA-Public Use
  Company Number: US-ASTRAZENECA-2012SE53879

PATIENT
  Age: 38 Year
  Sex: Female
  Weight: 70.3 kg

DRUGS (4)
  1. NEXIUM [Suspect]
     Indication: GASTROOESOPHAGEAL REFLUX DISEASE
     Route: 048
     Dates: start: 20090101
  2. NEXIUM [Suspect]
     Dosage: UNKNOWN MILLIGRAMS 2X PER DAY ONE IN AM AND ONE IN THE PM
     Route: 048
  3. FISH OIL [Concomitant]
  4. M.V.I. [Concomitant]

REACTIONS (4)
  - MALAISE [None]
  - ABDOMINAL PAIN UPPER [None]
  - OFF LABEL USE [None]
  - GASTRIC DISORDER [None]
